FAERS Safety Report 24770813 (Version 1)
Quarter: 2024Q4

REPORT INFORMATION
  Report Type: Spontaneous
  Country: CN (occurrence: CN)
  Receive Date: 20241224
  Receipt Date: 20241224
  Transmission Date: 20250115
  Serious: Yes (Other)
  Sender: GE HEALTHCARE
  Company Number: CN-GE HEALTHCARE-2024CSU014707

PATIENT
  Age: 81 Year
  Sex: Male
  Weight: 43 kg

DRUGS (3)
  1. OMNIPAQUE [Suspect]
     Active Substance: IOHEXOL
     Indication: Computerised tomogram abdomen
     Dosage: 30 GM, TOTAL
     Route: 042
     Dates: start: 20241207, end: 20241207
  2. PIPERACILLIN AND TAZOBACTAM [Concomitant]
     Active Substance: PIPERACILLIN SODIUM\TAZOBACTAM SODIUM
     Indication: Biliary tract infection
     Dosage: 4.5 GM, TID
     Route: 041
     Dates: start: 20241207, end: 20241207
  3. IMIPENEM AND CILASTATIN SODIUM [Concomitant]
     Active Substance: CILASTATIN SODIUM\IMIPENEM
     Indication: Infection
     Dosage: 1 GM, TID
     Route: 041
     Dates: start: 20241207, end: 20241213

REACTIONS (10)
  - Septic shock [Recovered/Resolved]
  - Temperature intolerance [Recovered/Resolved]
  - Blood pressure decreased [Recovered/Resolved]
  - Peripheral swelling [Recovered/Resolved]
  - Rash pruritic [Recovered/Resolved]
  - Rash erythematous [Recovered/Resolved]
  - Pyrexia [Recovered/Resolved]
  - Hyperhidrosis [Recovered/Resolved]
  - Chills [Recovered/Resolved]
  - Type IV hypersensitivity reaction [Recovered/Resolved]

NARRATIVE: CASE EVENT DATE: 20241207
